FAERS Safety Report 18747004 (Version 2)
Quarter: 2021Q1

REPORT INFORMATION
  Report Type: Spontaneous
  Country: JP (occurrence: JP)
  Receive Date: 20210115
  Receipt Date: 20210309
  Transmission Date: 20210419
  Serious: Yes (Other)
  Sender: FDA-Public Use
  Company Number: JP-PFIZER INC-2021019124

PATIENT
  Age: 83 Year
  Sex: Female
  Weight: 51 kg

DRUGS (6)
  1. ISCOTIN [Suspect]
     Active Substance: ISONIAZID
     Dosage: 3 DF, 1X/DAY
     Route: 048
     Dates: start: 20201115, end: 20210104
  2. PYRAMIDE [Concomitant]
     Active Substance: PYRAZINAMIDE
     Dosage: 1 G, 1X/DAY
     Route: 048
     Dates: start: 20201115, end: 20210104
  3. EBUTOL [Suspect]
     Active Substance: ETHAMBUTOL HYDROCHLORIDE
     Dosage: 3 DF, 1X/DAY
     Dates: start: 20201115, end: 20210104
  4. THYRADIN [Concomitant]
     Active Substance: LEVOTHYROXINE
     Dosage: 1.5 DF, 1X/DAY (IN THE MORNING)
     Route: 048
  5. RIFAMPICIN [Concomitant]
     Active Substance: RIFAMPIN
     Dosage: 3 DF, 1X/DAY
     Route: 048
     Dates: start: 20201115, end: 20201216
  6. MYCOBUTIN [Suspect]
     Active Substance: RIFABUTIN
     Dosage: 1 DF (1 CAPSULE DAILY IN THE MORNING), 1X/DAY
     Route: 048
     Dates: start: 20201218, end: 20201227

REACTIONS (1)
  - Tubulointerstitial nephritis [Recovering/Resolving]

NARRATIVE: CASE EVENT DATE: 20210104
